FAERS Safety Report 5453329-2 (Version None)
Quarter: 2007Q3

REPORT INFORMATION
  Report Type: 
  Country: None (occurrence: None)
  Receive Date: 20070813
  Receipt Date: 20060824
  Transmission Date: 20080115
  Serious: Yes (Hospitalization)
  Sender: FDA-Public Use
  Company Number: 20063095

PATIENT
  Sex: Male

DRUGS (1)
  1. LIORESAL [Suspect]
     Indication: MUSCLE SPASTICITY
     Dosage: 499.6 MCG, DAILY, INTRATHECAL
     Route: 037

REACTIONS (2)
  - DRUG INEFFECTIVE [None]
  - HYPERTONIA [None]
